FAERS Safety Report 6331675-8 (Version None)
Quarter: 2009Q3

REPORT INFORMATION
  Report Type: 
  Country: None (occurrence: None)
  Receive Date: 20090827
  Receipt Date: 20090825
  Transmission Date: 20100115
  Serious: Yes (Other)
  Sender: FDA-Public Use
  Company Number: US-PURDUE-USA-2009-0039779

PATIENT
  Age: 80 Year
  Sex: Female

DRUGS (1)
  1. RYZOLT [Suspect]
     Indication: PAIN
     Dosage: 100 MG, UNK
     Route: 048

REACTIONS (1)
  - HALLUCINATION, VISUAL [None]
